FAERS Safety Report 13707680 (Version 1)
Quarter: 2017Q2

REPORT INFORMATION
  Report Type: Spontaneous
  Country: GB (occurrence: GB)
  Receive Date: 20170630
  Receipt Date: 20170630
  Transmission Date: 20170830
  Serious: Yes (Other)
  Sender: FDA-Public Use
  Company Number: GB-PFIZER INC-2017282800

PATIENT
  Age: 47 Year
  Sex: Male

DRUGS (2)
  1. SERTRALINE HCL [Suspect]
     Active Substance: SERTRALINE HYDROCHLORIDE
     Dosage: UNK
     Dates: start: 20170615
  2. CITALOPRAM [Concomitant]
     Active Substance: CITALOPRAM HYDROBROMIDE
     Dosage: 1 DF, 1X/DAY
     Dates: start: 20170418

REACTIONS (3)
  - Muscle spasms [Recovering/Resolving]
  - Muscle spasms [Unknown]
  - Radiologically isolated syndrome [Unknown]

NARRATIVE: CASE EVENT DATE: 20170615
